FAERS Safety Report 10040177 (Version 4)
Quarter: 2014Q2

REPORT INFORMATION
  Report Type: Report from Study
  Country: DE (occurrence: DE)
  Receive Date: 20140326
  Receipt Date: 20140516
  Transmission Date: 20141212
  Serious: Yes (Hospitalization)
  Sender: FDA-Public Use
  Company Number: DE-AMGEN-DEUCT2014016461

PATIENT
  Age: 83 Year
  Sex: Female

DRUGS (1)
  1. PANITUMUMAB [Suspect]
     Indication: RECTAL CANCER
     Dosage: 6 MG/KG, UNK
     Route: 042
     Dates: start: 20140114

REACTIONS (4)
  - Urinary tract infection [Not Recovered/Not Resolved]
  - General physical health deterioration [Not Recovered/Not Resolved]
  - Diarrhoea [Recovered/Resolved]
  - Vomiting [Recovered/Resolved]
